FAERS Safety Report 5692942-4 (Version None)
Quarter: 2008Q2

REPORT INFORMATION
  Report Type: 
  Country: None (occurrence: None)
  Receive Date: 20080328
  Receipt Date: 20070312
  Transmission Date: 20081010
  Serious: Yes (Other)
  Sender: FDA-Public Use
  Company Number: HQWYE728214MAR07

PATIENT
  Age: 86 Year
  Sex: Female
  Weight: 43.13 kg

DRUGS (2)
  1. PROTONIX [Suspect]
     Indication: GASTRIC DISORDER
     Dosage: 40 MG 1X PER 1 DAY, ORAL
     Route: 048
     Dates: start: 20070216, end: 20070310
  2. VERAPAMIL [Concomitant]

REACTIONS (3)
  - CONDITION AGGRAVATED [None]
  - HYPERTENSION [None]
  - INSOMNIA [None]
